FAERS Safety Report 18157598 (Version 1)
Quarter: 2020Q3

REPORT INFORMATION
  Report Type: Spontaneous
  Country: FR (occurrence: FR)
  Receive Date: 20200817
  Receipt Date: 20200817
  Transmission Date: 20201103
  Serious: Yes (Death, Other)
  Sender: FDA-Public Use
  Company Number: FR-AMGEN-FRASP2020129357

PATIENT
  Sex: Female

DRUGS (4)
  1. ROMIPLOSTIM [Suspect]
     Active Substance: ROMIPLOSTIM
     Indication: APLASTIC ANAEMIA
     Dosage: UNK
     Route: 065
  2. MYCOPHENOLATE MOFETIL. [Concomitant]
     Active Substance: MYCOPHENOLATE MOFETIL
     Indication: APLASTIC ANAEMIA
  3. DANATROL [Concomitant]
     Active Substance: DANAZOL
     Indication: APLASTIC ANAEMIA
  4. RITUXIMAB. [Concomitant]
     Active Substance: RITUXIMAB
     Indication: APLASTIC ANAEMIA

REACTIONS (2)
  - Sepsis [Fatal]
  - Drug ineffective for unapproved indication [Unknown]
